FAERS Safety Report 13853260 (Version 1)
Quarter: 2017Q3

REPORT INFORMATION
  Report Type: Spontaneous
  Country: US (occurrence: US)
  Receive Date: 20170809
  Receipt Date: 20170809
  Transmission Date: 20171127
  Serious: Yes (Disabling, Other)
  Sender: FDA-Public Use
  Company Number: None

PATIENT
  Age: 68 Year
  Sex: Male
  Weight: 58.95 kg

DRUGS (1)
  1. XGEVA [Suspect]
     Active Substance: DENOSUMAB
     Indication: METASTASES TO BONE
     Dosage: ?          OTHER STRENGTH:STANDARD SHOT;OTHER FREQUENCY:ONCE A MONTH;?
     Route: 058
     Dates: start: 20150915, end: 20170120

REACTIONS (2)
  - Tooth extraction [None]
  - Osteonecrosis of jaw [None]

NARRATIVE: CASE EVENT DATE: 20160314
